FAERS Safety Report 5139472-6 (Version None)
Quarter: 2006Q4

REPORT INFORMATION
  Report Type: 
  Country: None (occurrence: None)
  Receive Date: 20061026
  Receipt Date: 20061026
  Transmission Date: 20070319
  Serious: Yes (Life-Threatening, Hospitalization, Other)
  Sender: FDA-Public Use
  Company Number: None

PATIENT
  Age: 78 Year
  Sex: Male
  Weight: 77.1115 kg

DRUGS (3)
  1. CASODEX [Suspect]
     Indication: PROSTATE CANCER
     Dosage: 1 TABLET DAILY ORAL
     Route: 048
     Dates: start: 20020101, end: 20060101
  2. TOPROL-XL [Concomitant]
  3. LIPITOR [Concomitant]

REACTIONS (3)
  - BREAST CANCER IN SITU [None]
  - BREAST CANCER MALE [None]
  - GYNAECOMASTIA [None]
